FAERS Safety Report 25561138 (Version 2)
Quarter: 2025Q3

REPORT INFORMATION
  Report Type: Spontaneous
  Country: US (occurrence: US)
  Receive Date: 20250715
  Receipt Date: 20250715
  Transmission Date: 20251021
  Serious: Yes (Hospitalization, Other)
  Sender: NOVO NORDISK
  Company Number: US-NOVOPROD-1350785

PATIENT
  Age: 49 Year
  Sex: Female
  Weight: 98.42 kg

DRUGS (12)
  1. OZEMPIC [Suspect]
     Active Substance: SEMAGLUTIDE
     Dosage: 0.25 MG, QW
     Dates: start: 20210830, end: 20220426
  2. OZEMPIC [Suspect]
     Active Substance: SEMAGLUTIDE
     Dosage: 0.25 MG, QW
     Dates: end: 20210220
  3. OZEMPIC [Suspect]
     Active Substance: SEMAGLUTIDE
     Indication: Type 2 diabetes mellitus
     Dosage: 0.25 MG, QW
     Dates: start: 20200110
  4. OZEMPIC [Suspect]
     Active Substance: SEMAGLUTIDE
     Dosage: 1 MG, QW
     Dates: start: 20210304, end: 20210401
  5. OZEMPIC [Suspect]
     Active Substance: SEMAGLUTIDE
     Indication: Type 2 diabetes mellitus
     Dosage: 1 MG, QW
     Dates: start: 20200224
  6. TRULICITY [Concomitant]
     Active Substance: DULAGLUTIDE
     Indication: Type 2 diabetes mellitus
     Dosage: 1.5 MG, QW
     Dates: start: 20210528, end: 20210727
  7. METFORMIN [Concomitant]
     Active Substance: METFORMIN HYDROCHLORIDE
     Indication: Type 2 diabetes mellitus
     Dates: start: 20180101
  8. LISINOPRIL [Concomitant]
     Active Substance: LISINOPRIL
     Indication: Blood cholesterol increased
     Dates: start: 20150101
  9. IMITREX [Concomitant]
     Active Substance: SUMATRIPTAN SUCCINATE
     Indication: Migraine
     Dates: start: 20000101
  10. EMGALITY [Concomitant]
     Active Substance: GALCANEZUMAB-GNLM
     Indication: Migraine
     Dates: start: 20180101
  11. TYLENOL [Concomitant]
     Active Substance: ACETAMINOPHEN
     Indication: Headache
     Dates: start: 20000101
  12. TYLENOL [Concomitant]
     Active Substance: ACETAMINOPHEN
     Indication: Abdominal pain

REACTIONS (9)
  - Impaired gastric emptying [Not Recovered/Not Resolved]
  - Anxiety [Unknown]
  - Depression [Unknown]
  - Malnutrition [Recovered/Resolved]
  - Dehydration [Recovered/Resolved]
  - Decreased appetite [Not Recovered/Not Resolved]
  - Constipation [Not Recovered/Not Resolved]
  - Dyspepsia [Not Recovered/Not Resolved]
  - Off label use [Unknown]

NARRATIVE: CASE EVENT DATE: 20200101
